FAERS Safety Report 12656200 (Version 2)
Quarter: 2017Q3

REPORT INFORMATION
  Report Type: Spontaneous
  Country: US (occurrence: US)
  Receive Date: 20160816
  Receipt Date: 20170822
  Transmission Date: 20171127
  Serious: No
  Sender: FDA-Public Use
  Company Number: US-GALDERMA-US16000875

PATIENT
  Sex: Female

DRUGS (1)
  1. METROGEL [Suspect]
     Active Substance: METRONIDAZOLE
     Indication: ROSACEA
     Dosage: 1%
     Route: 061

REACTIONS (3)
  - Drug ineffective [Recovered/Resolved]
  - Erythema [Recovered/Resolved]
  - Skin burning sensation [Recovered/Resolved]
